FAERS Safety Report 19657532 (Version 2)
Quarter: 2021Q3

REPORT INFORMATION
  Report Type: Spontaneous
  Country: US (occurrence: US)
  Receive Date: 20210804
  Receipt Date: 20210920
  Transmission Date: 20211014
  Serious: Yes (Other)
  Sender: FDA-Public Use
  Company Number: US-PFIZER INC-202100941238

PATIENT
  Age: 40 Year
  Sex: Male

DRUGS (1)
  1. XYNTHA [Suspect]
     Active Substance: ANTIHEMOPHILIC FACTOR, HUMAN RECOMBINANT RESIDUES 743-1636 DELETED
     Indication: FACTOR VIII DEFICIENCY
     Dosage: UNK

REACTIONS (5)
  - Discomfort [Unknown]
  - Haemophilic arthropathy [Unknown]
  - Knee deformity [Unknown]
  - Illness [Unknown]
  - Haemorrhage [Unknown]
